FAERS Safety Report 22261783 (Version 1)
Quarter: 2023Q2

REPORT INFORMATION
  Report Type: Spontaneous
  Country: SA (occurrence: SA)
  Receive Date: 20230428
  Receipt Date: 20230428
  Transmission Date: 20230722
  Serious: Yes (Hospitalization, Other)
  Sender: FDA-Public Use
  Company Number: SA-BRISTOL-MYERS SQUIBB COMPANY-2023-051947

PATIENT
  Age: 22 Year
  Sex: Male

DRUGS (2)
  1. APIXABAN [Suspect]
     Active Substance: APIXABAN
     Indication: Embolism venous
     Route: 048
  2. APIXABAN [Suspect]
     Active Substance: APIXABAN
     Indication: Hepatic vein thrombosis
     Route: 048
     Dates: start: 2018

REACTIONS (1)
  - Intraventricular haemorrhage [Unknown]

NARRATIVE: CASE EVENT DATE: 20180101
